FAERS Safety Report 24119437 (Version 1)
Quarter: 2024Q3

REPORT INFORMATION
  Report Type: Other
  Country: ES (occurrence: ES)
  Receive Date: 20240722
  Receipt Date: 20240722
  Transmission Date: 20241017
  Serious: Yes (Hospitalization)
  Sender: ASTELLAS
  Company Number: ES-ASTELLAS-2024US020821

PATIENT
  Age: 75 Year
  Sex: Female

DRUGS (9)
  1. REGADENOSON [Suspect]
     Active Substance: REGADENOSON
     Indication: Magnetic resonance imaging heart
     Route: 042
     Dates: start: 20240531, end: 20240531
  2. REGADENOSON [Suspect]
     Active Substance: REGADENOSON
     Indication: Magnetic resonance imaging heart
     Route: 042
     Dates: start: 20240531, end: 20240531
  3. REGADENOSON [Suspect]
     Active Substance: REGADENOSON
     Indication: Magnetic resonance imaging heart
     Route: 042
     Dates: start: 20240531, end: 20240531
  4. REGADENOSON [Suspect]
     Active Substance: REGADENOSON
     Indication: Magnetic resonance imaging heart
     Route: 042
     Dates: start: 20240531, end: 20240531
  5. GADOBUTROL [Suspect]
     Active Substance: GADOBUTROL
     Indication: Magnetic resonance imaging heart
     Route: 042
     Dates: start: 20240531, end: 20240531
  6. THEOPHYLLINE ANHYDROUS [Suspect]
     Active Substance: THEOPHYLLINE ANHYDROUS
     Indication: Magnetic resonance imaging heart
     Route: 042
     Dates: start: 20240531, end: 20240531
  7. ATORVASTATIN CALCIUM\EZETIMIBE [Concomitant]
     Active Substance: ATORVASTATIN CALCIUM\EZETIMIBE
     Indication: Hypercholesterolaemia
     Dosage: UNK UNK, UNKNOWN FREQ.
     Route: 065
     Dates: start: 20220420
  8. NITROGLYCERIN [Concomitant]
     Active Substance: NITROGLYCERIN
     Indication: Myocardial ischaemia
     Dosage: UNK UNK, UNKNOWN FREQ.
     Route: 065
     Dates: start: 20220317
  9. ASPIRIN [Concomitant]
     Active Substance: ASPIRIN
     Indication: Myocardial ischaemia
     Dosage: UNK UNK, UNKNOWN FREQ.
     Route: 065
     Dates: start: 20220317

REACTIONS (4)
  - Infusion related reaction [Recovered/Resolved]
  - Pruritus [Recovered/Resolved]
  - Dysphagia [Recovered/Resolved]
  - Dyspnoea [Recovered/Resolved]

NARRATIVE: CASE EVENT DATE: 20240531
